FAERS Safety Report 8440661-3 (Version None)
Quarter: 2012Q2

REPORT INFORMATION
  Report Type: 
  Country: None (occurrence: None)
  Receive Date: 20120615
  Receipt Date: 20120607
  Transmission Date: 20120825
  Serious: Yes (Hospitalization)
  Sender: FDA-Public Use
  Company Number: SE-JNJFOC-20120604766

PATIENT
  Age: 65 Year
  Sex: Female

DRUGS (10)
  1. COX-1 ANTAGONIST [Concomitant]
     Dates: start: 20020718, end: 20080804
  2. PREDNISOLONE [Concomitant]
     Dates: start: 20060803, end: 20070206
  3. ORENCIA [Suspect]
     Indication: RHEUMATOID ARTHRITIS
     Route: 042
     Dates: start: 20101001, end: 20120206
  4. COX-1 ANTAGONIST [Concomitant]
     Dates: start: 20090210, end: 20100709
  5. PREDNISOLONE [Concomitant]
     Indication: PRODUCT USED FOR UNKNOWN INDICATION
     Dates: start: 20070813
  6. SANDIMMUNE [Concomitant]
     Indication: PRODUCT USED FOR UNKNOWN INDICATION
     Dates: start: 20060803, end: 20060804
  7. IMURAN [Suspect]
     Indication: RHEUMATOID ARTHRITIS
     Route: 048
     Dates: start: 20060803, end: 20111208
  8. HUMIRA [Suspect]
     Indication: RHEUMATOID ARTHRITIS
     Route: 058
     Dates: start: 20090901, end: 20091105
  9. COX-1 ANTAGONIST [Concomitant]
     Dates: start: 20101001
  10. REMICADE [Suspect]
     Indication: RHEUMATOID ARTHRITIS
     Route: 042
     Dates: start: 20071220, end: 20090901

REACTIONS (1)
  - BREAST CANCER [None]
